FAERS Safety Report 7737610-X (Version None)
Quarter: 2011Q3

REPORT INFORMATION
  Report Type: 
  Country: None (occurrence: None)
  Receive Date: 20110908
  Receipt Date: 20110826
  Transmission Date: 20111222
  Serious: Yes (Other)
  Sender: FDA-Public Use
  Company Number: GB-ELI_LILLY_AND_COMPANY-GB201108008745

PATIENT
  Age: 57 Year
  Sex: Female

DRUGS (12)
  1. ISOSORBIDE MONONITRATE [Concomitant]
  2. NICORANDIL [Concomitant]
  3. NITROGLYCERIN [Concomitant]
  4. HUMULIN N [Suspect]
     Indication: TYPE 2 DIABETES MELLITUS
     Dosage: 350 U, QD
     Route: 058
  5. GLYBURIDE [Concomitant]
     Route: 048
  6. METFORMIN HCL [Concomitant]
     Route: 048
  7. DILTIAZEM [Concomitant]
  8. LANSOPRAZOLE [Concomitant]
  9. ASPIRIN [Concomitant]
  10. ALBUTEROL [Concomitant]
     Route: 055
  11. BECLOMETHASONE DIPROPIONATE [Concomitant]
     Route: 055
  12. FENOFIBRATE [Concomitant]

REACTIONS (1)
  - ACROMEGALY [None]
